FAERS Safety Report 19449257 (Version 1)
Quarter: 2021Q2

REPORT INFORMATION
  Report Type: Report from Study
  Country: US (occurrence: US)
  Receive Date: 20210622
  Receipt Date: 20210622
  Transmission Date: 20210717
  Serious: Yes (Other)
  Sender: FDA-Public Use
  Company Number: US-JAZZ-2021-US-011140

PATIENT
  Sex: Female

DRUGS (4)
  1. VITAMIN D3 [Concomitant]
     Active Substance: CHOLECALCIFEROL
  2. XYREM [Suspect]
     Active Substance: SODIUM OXYBATE
     Dosage: 4.5 GRAM, BID
     Route: 048
     Dates: start: 202104
  3. XYREM [Suspect]
     Active Substance: SODIUM OXYBATE
     Indication: CATAPLEXY
     Dosage: DOSE ADJUSTMENT
     Route: 048
     Dates: start: 202006, end: 202104
  4. XYREM [Suspect]
     Active Substance: SODIUM OXYBATE
     Indication: NARCOLEPSY
     Dosage: 2.25 GRAM, BID
     Route: 048
     Dates: start: 202006, end: 202006

REACTIONS (11)
  - Pallor [Unknown]
  - Tonsillectomy [Recovered/Resolved]
  - Bruxism [Unknown]
  - Pancreatitis acute [Recovered/Resolved]
  - Dry mouth [Recovered/Resolved]
  - Weight decreased [Unknown]
  - Snoring [Unknown]
  - Pain [Unknown]
  - Cholecystectomy [Recovered/Resolved]
  - Blood pressure increased [Not Recovered/Not Resolved]
  - Vomiting projectile [Unknown]
